FAERS Safety Report 7596766-2 (Version None)
Quarter: 2011Q3

REPORT INFORMATION
  Report Type: 
  Country: None (occurrence: None)
  Receive Date: 20110708
  Receipt Date: 20110630
  Transmission Date: 20111222
  Serious: Yes (Other)
  Sender: FDA-Public Use
  Company Number: US-US-EMD SERONO, INC.-7068844

PATIENT
  Sex: Female

DRUGS (3)
  1. REBIF [Suspect]
     Indication: MULTIPLE SCLEROSIS
     Route: 058
     Dates: start: 20071029
  2. UNSPECIFIED MEDICATIONS [Concomitant]
  3. REBIF [Suspect]
     Route: 058

REACTIONS (2)
  - DIABETES MELLITUS [None]
  - HYPERTENSION [None]
